FAERS Safety Report 6853773-2 (Version None)
Quarter: 2010Q3

REPORT INFORMATION
  Report Type: 
  Country: None (occurrence: None)
  Receive Date: 20100717
  Receipt Date: 20071217
  Transmission Date: 20110219
  Serious: Yes (Other)
  Sender: FDA-Public Use
  Company Number: US-PFIZER INC-2007106742

PATIENT
  Age: 55 Year
  Sex: Female

DRUGS (3)
  1. CHANTIX [Suspect]
     Indication: SMOKING CESSATION THERAPY
  2. ALL OTHER THERAPEUTIC PRODUCTS [Interacting]
  3. DRUG, UNSPECIFIED [Concomitant]

REACTIONS (5)
  - ASTHENIA [None]
  - CRYING [None]
  - DRUG INTERACTION [None]
  - VIITH NERVE PARALYSIS [None]
  - WEIGHT INCREASED [None]
